FAERS Safety Report 9406505 (Version 1)
Quarter: 2013Q3

REPORT INFORMATION
  Report Type: Spontaneous
  Country: SE (occurrence: SE)
  Receive Date: 20130718
  Receipt Date: 20130718
  Transmission Date: 20140515
  Serious: Yes (Life-Threatening, Hospitalization, Other)
  Sender: FDA-Public Use
  Company Number: SE-MERCK-1307SWE007910

PATIENT
  Age: 80 Year
  Sex: Female

DRUGS (9)
  1. JANUVIA [Suspect]
     Indication: DIABETES MELLITUS
     Dosage: UNK, QD
     Route: 048
     Dates: start: 20100301, end: 20130326
  2. JANUMET [Suspect]
     Indication: DIABETES MELLITUS
     Dosage: UNKNOWN
     Route: 048
     Dates: start: 20100301, end: 20130326
  3. SPIRIVA [Concomitant]
  4. METFORMIN [Concomitant]
  5. SIMVASTATIN [Concomitant]
  6. AMLODIPINE [Concomitant]
  7. CANDESARTAN [Concomitant]
  8. FURIX [Concomitant]
  9. SELOKEN ZOC [Concomitant]

REACTIONS (2)
  - Jaundice [Not Recovered/Not Resolved]
  - Pancreatic carcinoma [Not Recovered/Not Resolved]
